FAERS Safety Report 16185081 (Version 7)
Quarter: 2025Q1

REPORT INFORMATION
  Report Type: Spontaneous
  Country: DK (occurrence: DK)
  Receive Date: 20190411
  Receipt Date: 20250311
  Transmission Date: 20250409
  Serious: Yes (Hospitalization, Other)
  Sender: BRISTOL-MYERS SQUIBB COMPANY
  Company Number: DK-BRISTOL-MYERS SQUIBB COMPANY-BMS-2019-034484

PATIENT
  Age: 62 Year
  Sex: Male
  Weight: 102 kg

DRUGS (16)
  1. APIXABAN [Suspect]
     Active Substance: APIXABAN
     Indication: Atrial fibrillation
     Dosage: 5 MILLIGRAM, BID
     Route: 048
     Dates: start: 20190118, end: 20190126
  2. APIXABAN [Suspect]
     Active Substance: APIXABAN
     Indication: Thrombosis prophylaxis
  3. PREDNISOLONE [Concomitant]
     Active Substance: PREDNISOLONE
     Indication: Inflammatory bowel disease
     Dosage: 10 MILLIGRAM, 1 DAY
     Route: 054
     Dates: start: 20190103
  4. KALIUMKLORID [Concomitant]
     Indication: Mineral supplementation
     Dosage: 750 MILLIGRAM, 1 DAY
     Route: 048
     Dates: start: 20190108
  5. FUROSEMIDE [Concomitant]
     Active Substance: FUROSEMIDE
     Indication: Diuretic therapy
     Dosage: 40 MILLIGRAM, 1 DAY
     Route: 048
     Dates: start: 20190113
  6. AMITRIPTYLINE [Concomitant]
     Active Substance: AMITRIPTYLINE
     Indication: Neuralgia
     Dosage: 25 MILLIGRAM, 1 DAY
     Route: 048
     Dates: start: 20170912
  7. ASACOL [Concomitant]
     Active Substance: MESALAMINE
     Indication: Colitis ulcerative
     Dosage: 800 MILLIGRAM, 1 DAY
     Route: 048
     Dates: start: 20181219
  8. ASACOL [Concomitant]
     Active Substance: MESALAMINE
     Indication: Proctitis haemorrhagic
  9. OLODATEROL HYDROCHLORIDE\TIOTROPIUM BROMIDE MONOHYDRATE [Concomitant]
     Active Substance: OLODATEROL HYDROCHLORIDE\TIOTROPIUM BROMIDE MONOHYDRATE
     Indication: Lung disorder
     Dosage: 2 DOSAGE FORM, 1 DAY
     Route: 055
     Dates: start: 20190105
  10. ALBUTEROL SULFATE [Concomitant]
     Active Substance: ALBUTEROL SULFATE
     Indication: Lung disorder
     Route: 055
     Dates: start: 20180403
  11. METOPROLOL [Concomitant]
     Active Substance: METOPROLOL
     Indication: Cardiac disorder
     Route: 048
  12. POTASSIUM CHLORIDE [Concomitant]
     Active Substance: POTASSIUM CHLORIDE
     Indication: Mineral supplementation
     Route: 048
     Dates: start: 20190108
  13. PREDNISONE [Concomitant]
     Active Substance: PREDNISONE
     Indication: Inflammatory bowel disease
     Dosage: 10 MILLIGRAM 1 DAY
     Route: 054
     Dates: start: 20190103
  14. PREDNISONE [Concomitant]
     Active Substance: PREDNISONE
  15. PREDNISONE [Concomitant]
     Active Substance: PREDNISONE
  16. FUROSEMIDE [Concomitant]
     Active Substance: FUROSEMIDE
     Indication: Diuretic therapy
     Dosage: 40 MILLIGRAM 1 DAY
     Route: 048
     Dates: start: 20190113

REACTIONS (5)
  - Cutaneous vasculitis [Recovered/Resolved with Sequelae]
  - Rash erythematous [Recovering/Resolving]
  - Pain [Recovering/Resolving]
  - Oedema [Recovering/Resolving]
  - Pyrexia [Unknown]

NARRATIVE: CASE EVENT DATE: 20190119
